FAERS Safety Report 6504305-X (Version None)
Quarter: 2009Q4

REPORT INFORMATION
  Report Type: 
  Country: None (occurrence: None)
  Receive Date: 20091215
  Receipt Date: 20091102
  Transmission Date: 20100525
  Serious: Yes (Other)
  Sender: FDA-Public Use
  Company Number: 002021

PATIENT
  Age: 45 Year
  Sex: Female

DRUGS (1)
  1. VIMPAT [Suspect]
     Dosage: (50 MG QD)

REACTIONS (8)
  - AMNESIA [None]
  - CONDITION AGGRAVATED [None]
  - CONVULSION [None]
  - CRYING [None]
  - DEPRESSION [None]
  - FATIGUE [None]
  - SUICIDAL IDEATION [None]
  - VISUAL ACUITY REDUCED [None]
